FAERS Safety Report 7090114-2 (Version None)
Quarter: 2010Q4

REPORT INFORMATION
  Report Type: 
  Country: None (occurrence: None)
  Receive Date: 20101105
  Receipt Date: 20101105
  Transmission Date: 20110411
  Serious: No
  Sender: FDA-Public Use
  Company Number: None

PATIENT
  Age: 54 Year
  Sex: Male
  Weight: 65.7716 kg

DRUGS (5)
  1. PAXIL [Suspect]
     Indication: ANXIETY
     Dosage: ONE TAB BI MOUTH ONE TIME DAILY
     Route: 048
     Dates: start: 20080801, end: 20080811
  2. PAXIL [Suspect]
     Indication: DEPRESSION
     Dosage: ONE TAB BI MOUTH ONE TIME DAILY
     Route: 048
     Dates: start: 20080801, end: 20080811
  3. PAXIL [Suspect]
     Indication: PARANOIA
     Dosage: ONE TAB BI MOUTH ONE TIME DAILY
     Route: 048
     Dates: start: 20080801, end: 20080811
  4. PAXIL [Suspect]
     Indication: POST-TRAUMATIC STRESS DISORDER
     Dosage: ONE TAB BI MOUTH ONE TIME DAILY
     Route: 048
     Dates: start: 20080801, end: 20080811
  5. PAXIL [Suspect]
     Indication: STRESS
     Dosage: ONE TAB BI MOUTH ONE TIME DAILY
     Route: 048
     Dates: start: 20080801, end: 20080811

REACTIONS (9)
  - ANGIOEDEMA [None]
  - BACK PAIN [None]
  - COGNITIVE DISORDER [None]
  - ERYTHEMA [None]
  - LIBIDO DECREASED [None]
  - MENTAL STATUS CHANGES [None]
  - OCULAR HYPERAEMIA [None]
  - PARANOIA [None]
  - SWELLING [None]
